FAERS Safety Report 5734190-5 (Version None)
Quarter: 2008Q2

REPORT INFORMATION
  Report Type: 
  Country: None (occurrence: None)
  Receive Date: 20080510
  Receipt Date: 20080505
  Transmission Date: 20081010
  Serious: Yes (Other)
  Sender: FDA-Public Use
  Company Number: PHEH2006US09870

PATIENT
  Sex: Female

DRUGS (3)
  1. LOTENSIN HCT [Suspect]
     Indication: HYPERTENSION
     Dates: end: 20031216
  2. LOTENSIN HCT [Suspect]
     Dates: start: 20040701
  3. ALDOMET [Suspect]
     Indication: HYPERTENSION
     Dosage: UNK, UNK
     Dates: start: 20031216, end: 20040701

REACTIONS (5)
  - AMNIOTIC FLUID VOLUME DECREASED [None]
  - CAESAREAN SECTION [None]
  - DRUG EXPOSURE DURING PREGNANCY [None]
  - PRE-ECLAMPSIA [None]
  - WEIGHT INCREASED [None]
